FAERS Safety Report 21003775 (Version 2)
Quarter: 2022Q3

REPORT INFORMATION
  Report Type: Spontaneous
  Country: GB (occurrence: GB)
  Receive Date: 20220624
  Receipt Date: 20220908
  Transmission Date: 20221027
  Serious: Yes (Other)
  Sender: FDA-Public Use
  Company Number: GB-PFIZER INC-202200884412

PATIENT

DRUGS (1)
  1. DINOPROSTONE [Suspect]
     Active Substance: DINOPROSTONE
     Indication: Labour induction
     Dosage: 2 MG, SINGLE
     Route: 064
     Dates: start: 20220617

REACTIONS (2)
  - Foetal exposure during delivery [Unknown]
  - Tachycardia foetal [Unknown]

NARRATIVE: CASE EVENT DATE: 20220617
